FAERS Safety Report 8280272-6 (Version None)
Quarter: 2012Q2

REPORT INFORMATION
  Report Type: 
  Country: None (occurrence: None)
  Receive Date: 20120412
  Receipt Date: 20111021
  Transmission Date: 20120825
  Serious: No
  Sender: FDA-Public Use
  Company Number: US-ASTRAZENECA-2011SE63748

PATIENT
  Sex: Female

DRUGS (3)
  1. NEXIUM [Suspect]
     Indication: DYSPEPSIA
     Route: 048
     Dates: end: 20111019
  2. POTASSIUM [Concomitant]
  3. METOPROLOL TARTRATE [Concomitant]
     Indication: CARDIAC DISORDER

REACTIONS (4)
  - HIATUS HERNIA [None]
  - DRUG DOSE OMISSION [None]
  - OESOPHAGEAL DILATATION [None]
  - DYSPEPSIA [None]
